FAERS Safety Report 17135869 (Version 1)
Quarter: 2019Q4

REPORT INFORMATION
  Report Type: Spontaneous
  Country: US (occurrence: US)
  Receive Date: 20191210
  Receipt Date: 20191210
  Transmission Date: 20200122
  Serious: No
  Sender: FDA-Public Use
  Company Number: US-OSMOTICA_PHARMACEUTICAL_US_LLC-POI0573201900362

PATIENT
  Age: 17 Year
  Sex: Male

DRUGS (3)
  1. OSMOLEX ER [Suspect]
     Active Substance: AMANTADINE
     Indication: ATTENTION DEFICIT/HYPERACTIVITY DISORDER
     Dates: start: 201908
  2. OSMOLEX ER [Suspect]
     Active Substance: AMANTADINE
     Indication: AUTISM SPECTRUM DISORDER
  3. OSMOLEX ER [Suspect]
     Active Substance: AMANTADINE
     Indication: OBSESSIVE-COMPULSIVE DISORDER
     Dates: start: 201908

REACTIONS (2)
  - Product use issue [Unknown]
  - Off label use [Unknown]

NARRATIVE: CASE EVENT DATE: 201908
